FAERS Safety Report 24218782 (Version 1)
Quarter: 2024Q3

REPORT INFORMATION
  Report Type: Spontaneous
  Country: US (occurrence: US)
  Receive Date: 20240816
  Receipt Date: 20240816
  Transmission Date: 20241016
  Serious: No
  Sender: SANOFI AVENTIS
  Company Number: US-SA-SAC20240812000875

PATIENT
  Sex: Female
  Weight: 95 kg

DRUGS (5)
  1. DUPIXENT [Suspect]
     Active Substance: DUPILUMAB
     Indication: Dermatitis atopic
     Dosage: 300 MG, QOW
     Route: 058
  2. ENBREL [Concomitant]
     Active Substance: BENZYL ALCOHOL\ETANERCEPT
  3. FERROUS GLUCONATE [Concomitant]
     Active Substance: FERROUS GLUCONATE
  4. MONTELUKAST SODIUM [Concomitant]
     Active Substance: MONTELUKAST\MONTELUKAST SODIUM
  5. CITALOPRAM [Concomitant]
     Active Substance: CITALOPRAM\CITALOPRAM HYDROBROMIDE

REACTIONS (1)
  - Anaemia [Unknown]
